FAERS Safety Report 14015844 (Version 1)
Quarter: 2017Q3

REPORT INFORMATION
  Report Type: Spontaneous
  Country: CA (occurrence: CA)
  Receive Date: 20170927
  Receipt Date: 20170927
  Transmission Date: 20171128
  Serious: Yes (Other)
  Sender: FDA-Public Use
  Company Number: CA-MYLANLABS-2017M1059168

PATIENT
  Age: 44 Year
  Sex: Male
  Weight: 126 kg

DRUGS (3)
  1. NABILONE [Suspect]
     Active Substance: NABILONE
     Indication: PAIN
     Dosage: 0.5 MG, ONCE
     Route: 048
  2. MELATONIN [Concomitant]
     Active Substance: MELATONIN
     Indication: PRODUCT USED FOR UNKNOWN INDICATION
     Dosage: UNK
  3. MAVIK [Concomitant]
     Active Substance: TRANDOLAPRIL
     Indication: PRODUCT USED FOR UNKNOWN INDICATION
     Dosage: 0.5 MG, UNK

REACTIONS (2)
  - Ventricular tachycardia [Recovered/Resolved]
  - Palpitations [Recovered/Resolved]
